FAERS Safety Report 7923274-9 (Version None)
Quarter: 2011Q4

REPORT INFORMATION
  Report Type: 
  Country: None (occurrence: None)
  Receive Date: 20111117
  Receipt Date: 20110131
  Transmission Date: 20120403
  Serious: No
  Sender: FDA-Public Use
  Company Number: US-AMGEN-USASP2011005955

PATIENT
  Age: 66 Year
  Sex: Female

DRUGS (1)
  1. ENBREL [Suspect]
     Indication: RHEUMATOID ARTHRITIS
     Dosage: 50 MG, QWK
     Dates: start: 20100913

REACTIONS (5)
  - LETHARGY [None]
  - NAUSEA [None]
  - ABDOMINAL DISTENSION [None]
  - DIVERTICULITIS [None]
  - PYREXIA [None]
